FAERS Safety Report 9386768 (Version 1)
Quarter: 2013Q3

REPORT INFORMATION
  Report Type: Spontaneous
  Country: US (occurrence: US)
  Receive Date: 20130708
  Receipt Date: 20130708
  Transmission Date: 20140515
  Serious: No
  Sender: FDA-Public Use
  Company Number: US-PFIZER INC-2013200257

PATIENT
  Sex: Male

DRUGS (3)
  1. LYRICA [Suspect]
     Dosage: 225 MG, 3X/DAY
     Dates: start: 201201, end: 20130630
  2. LYRICA [Suspect]
     Dosage: 50 MG, 3X/DAY
     Dates: start: 20130701, end: 201307
  3. TRAMADOL [Concomitant]
     Dosage: 100MG TO 300MG AS NEEDED AT BED TIME

REACTIONS (2)
  - Dizziness [Unknown]
  - Somnolence [Unknown]
